FAERS Safety Report 8833058 (Version 2)
Quarter: 2012Q4

REPORT INFORMATION
  Report Type: 
  Country: US (occurrence: US)
  Receive Date: 20121010
  Receipt Date: 20121024
  Transmission Date: 20130627
  Serious: Yes (Death)
  Sender: FDA-Public Use
  Company Number: US-PFIZER INC-2012248706

PATIENT
  Age: 75 Year
  Sex: Female

DRUGS (3)
  1. SUTENT [Suspect]
     Indication: GASTROINTESTINAL STROMAL TUMOUR
     Dosage: 12.5 mg, for 28 days on and 14 days off
     Dates: start: 20120412
  2. SUTENT [Suspect]
     Indication: ABDOMINAL NEOPLASM
  3. SUTENT [Suspect]
     Indication: ABDOMINAL WALL NEOPLASM MALIGNANT

REACTIONS (2)
  - Disease progression [Fatal]
  - Gastrointestinal stromal tumour [Fatal]
